FAERS Safety Report 20595088 (Version 1)
Quarter: 2022Q1

REPORT INFORMATION
  Report Type: Spontaneous
  Country: US (occurrence: None)
  Receive Date: 20220314
  Receipt Date: 20220314
  Transmission Date: 20220423
  Serious: Yes (Hospitalization)
  Sender: FDA-Public Use
  Company Number: None

PATIENT
  Age: 63 Year
  Sex: Female

DRUGS (1)
  1. CAPECITABINE [Suspect]
     Active Substance: CAPECITABINE
     Dosage: 2000 MG BID ORAL?
     Route: 048
     Dates: start: 2021

REACTIONS (7)
  - Hot flush [None]
  - Fatigue [None]
  - Palpitations [None]
  - Palmar-plantar erythrodysaesthesia syndrome [None]
  - Diarrhoea [None]
  - Oral pain [None]
  - Rib fracture [None]

NARRATIVE: CASE EVENT DATE: 20210708
